FAERS Safety Report 11580731 (Version 6)
Quarter: 2018Q3

REPORT INFORMATION
  Report Type: Report from Study
  Country: US (occurrence: US)
  Receive Date: 20150930
  Receipt Date: 20180928
  Transmission Date: 20181010
  Serious: Yes (Other)
  Sender: FDA-Public Use
  Company Number: PHEH2015US017437

PATIENT
  Age: 56 Year
  Sex: Female
  Weight: 64.85 kg

DRUGS (1)
  1. GILENYA [Suspect]
     Active Substance: FINGOLIMOD HYDROCHLORIDE
     Indication: MULTIPLE SCLEROSIS
     Dosage: 0.5 MG, QD
     Route: 048
     Dates: start: 20150406

REACTIONS (18)
  - Nasopharyngitis [Unknown]
  - Insomnia [Recovering/Resolving]
  - Body height decreased [Unknown]
  - Gait disturbance [Recovering/Resolving]
  - Eye disorder [Recovering/Resolving]
  - Vision blurred [Recovering/Resolving]
  - Dysarthria [Recovering/Resolving]
  - Diplopia [Recovering/Resolving]
  - Pain [Recovering/Resolving]
  - Upper respiratory tract infection [Unknown]
  - Memory impairment [Recovering/Resolving]
  - Speech disorder [Recovering/Resolving]
  - Feeling abnormal [Recovering/Resolving]
  - Therapeutic response unexpected [Recovering/Resolving]
  - Fatigue [Recovering/Resolving]
  - Headache [Recovering/Resolving]
  - Multiple sclerosis relapse [Recovering/Resolving]
  - Respiratory disorder [Recovering/Resolving]

NARRATIVE: CASE EVENT DATE: 20150817
